FAERS Safety Report 5341399-1 (Version None)
Quarter: 2007Q2

REPORT INFORMATION
  Report Type: 
  Country: None (occurrence: None)
  Receive Date: 20070530
  Receipt Date: 20070514
  Transmission Date: 20071010
  Serious: Yes (Death, Life-Threatening, Hospitalization)
  Sender: FDA-Public Use
  Company Number: 2005EU000820

PATIENT
  Age: 54 Year
  Sex: Male

DRUGS (9)
  1. TACROLIMUS [Suspect]
     Indication: LIVER TRANSPLANT
     Dosage: 5 MG, UID/QD, ORAL
     Route: 048
     Dates: start: 20050326, end: 20050601
  2. MYCOPHENOLATE MOFETIL [Suspect]
     Indication: LIVER TRANSPLANT
     Dosage: SEE IMAGE
     Route: 042
     Dates: start: 20050326, end: 20050330
  3. MYCOPHENOLATE MOFETIL [Suspect]
     Indication: LIVER TRANSPLANT
     Dosage: SEE IMAGE
     Route: 042
     Dates: start: 20050331, end: 20050407
  4. HYDROCORTISONE [Suspect]
     Indication: LIVER TRANSPLANT
     Dosage: 100 MG, BID
     Dates: start: 20050326, end: 20050601
  5. PREDNISOLONE [Suspect]
     Indication: LIVER TRANSPLANT
     Dosage: 10.00 MG, UID/QD
     Dates: start: 20050327, end: 20050419
  6. PROPOFOL [Concomitant]
  7. AMITRIPTYLINE HCL [Concomitant]
  8. LANSOPRAZOLE [Concomitant]
  9. PARACETAMOL [Concomitant]

REACTIONS (18)
  - ABDOMINAL DISTENSION [None]
  - ABDOMINAL SEPSIS [None]
  - BLOOD PRESSURE DIASTOLIC DECREASED [None]
  - COLLAPSE OF LUNG [None]
  - CONTINUOUS HAEMODIAFILTRATION [None]
  - DRUG TOXICITY [None]
  - ENTEROCOCCAL INFECTION [None]
  - GENERAL PHYSICAL HEALTH DETERIORATION [None]
  - HAEMORRHAGE [None]
  - MELAENA [None]
  - NEUTROPHILIA [None]
  - OXYGEN SATURATION DECREASED [None]
  - PERITONITIS [None]
  - PULMONARY THROMBOSIS [None]
  - RECTAL HAEMORRHAGE [None]
  - RENAL FAILURE ACUTE [None]
  - RESPIRATORY DISTRESS [None]
  - SMALL INTESTINAL OBSTRUCTION [None]
